FAERS Safety Report 4585598-5 (Version None)
Quarter: 2005Q1

REPORT INFORMATION
  Report Type: 
  Country: None (occurrence: None)
  Receive Date: 20050214
  Receipt Date: 20050207
  Transmission Date: 20050727
  Serious: Yes (Hospitalization)
  Sender: FDA-Public Use
  Company Number: 2005025900

PATIENT
  Age: 77 Year
  Sex: Male

DRUGS (2)
  1. IRINOTECAN HCL [Suspect]
     Indication: COLORECTAL CANCER METASTATIC
     Dosage: 570 MG, INTRAVENOUS
     Route: 042
     Dates: start: 20041103, end: 20041215
  2. CETUXIMAB (CETUXIMAB) [Suspect]
     Indication: COLORECTAL CANCER METASTATIC
     Dosage: 472 MG, INTRAVENOUS
     Route: 042
     Dates: start: 20041103, end: 20041215

REACTIONS (1)
  - HYPERKALAEMIA [None]
